FAERS Safety Report 7942129-7 (Version None)
Quarter: 2011Q4

REPORT INFORMATION
  Report Type: 
  Country: None (occurrence: None)
  Receive Date: 20111122
  Receipt Date: 20111109
  Transmission Date: 20120403
  Serious: Yes (Other)
  Sender: FDA-Public Use
  Company Number: EU-201110229

PATIENT
  Sex: Male

DRUGS (9)
  1. PLETAL [Suspect]
     Indication: INTERMITTENT CLAUDICATION
     Dosage: 75 MG MILLIGRAM(S), DAILY DOSE, ORAL
     Route: 048
     Dates: start: 20100901
  2. NITROLINGUAL [Concomitant]
  3. COZAAR [Concomitant]
  4. ACETYLSALICYLIC ACID SRT [Concomitant]
  5. IMDUR [Concomitant]
  6. LIPITOR [Concomitant]
  7. PLENDIL [Concomitant]
  8. PLAVIX [Concomitant]
  9. SELOKENOZOC (METOPROLOL SUCCINATE) [Concomitant]

REACTIONS (2)
  - WRONG TECHNIQUE IN DRUG USAGE PROCESS [None]
  - GYNAECOMASTIA [None]
